FAERS Safety Report 7518509-0 (Version None)
Quarter: 2011Q2

REPORT INFORMATION
  Report Type: 
  Country: None (occurrence: None)
  Receive Date: 20110602
  Receipt Date: 20110525
  Transmission Date: 20111010
  Serious: Yes (Other)
  Sender: FDA-Public Use
  Company Number: JP-ASTELLAS-2011JP003497

PATIENT
  Age: 7 Year
  Sex: Male

DRUGS (5)
  1. FENTANYL [Concomitant]
     Route: 065
  2. PREDNISOLONE [Concomitant]
     Indication: GRAFT VERSUS HOST DISEASE
     Route: 065
  3. CYCLOPHOSPHAMIDE [Concomitant]
     Route: 065
  4. PROGRAF [Suspect]
     Dosage: UNK
     Route: 065
  5. ETOPOSIDE [Concomitant]
     Route: 065

REACTIONS (5)
  - GRAFT VERSUS HOST DISEASE [None]
  - HYDRONEPHROSIS [None]
  - DRUG INEFFECTIVE [None]
  - URETERITIS [None]
  - ADENOVIRAL HAEMORRHAGIC CYSTITIS [None]
